FAERS Safety Report 7634762-7 (Version None)
Quarter: 2011Q3

REPORT INFORMATION
  Report Type: 
  Country: None (occurrence: None)
  Receive Date: 20110726
  Receipt Date: 20110715
  Transmission Date: 20111222
  Serious: No
  Sender: FDA-Public Use
  Company Number: US-BIOGENIDEC-2010BI013125

PATIENT
  Sex: Female

DRUGS (26)
  1. MARIJUANA [Concomitant]
     Indication: NECK PAIN
  2. NARCOTICS (NOS) [Concomitant]
     Route: 048
  3. NARCOTICS (NOS) [Concomitant]
     Indication: MULTIPLE SCLEROSIS RELAPSE
     Route: 048
  4. NARCOTICS (NOS) [Concomitant]
     Indication: CENTRAL NERVOUS SYSTEM LESION
     Route: 048
  5. TYSABRI [Suspect]
     Indication: MULTIPLE SCLEROSIS
     Route: 042
     Dates: start: 20070122
  6. MARIJUANA [Concomitant]
     Indication: OEDEMA PERIPHERAL
  7. MARIJUANA [Concomitant]
     Indication: TOBACCO USER
  8. MARIJUANA [Concomitant]
     Indication: CENTRAL NERVOUS SYSTEM LESION
  9. NARCOTICS (NOS) [Concomitant]
     Indication: ARTHRITIS
     Route: 048
  10. MARIJUANA [Concomitant]
     Indication: FOOT FRACTURE
  11. MARIJUANA [Concomitant]
     Indication: MULTIPLE SCLEROSIS RELAPSE
  12. NARCOTICS (NOS) [Concomitant]
     Indication: HYPOAESTHESIA
     Route: 048
  13. NARCOTICS (NOS) [Concomitant]
     Indication: INTERVERTEBRAL DISC PROTRUSION
     Route: 048
  14. MARIJUANA [Concomitant]
  15. MARIJUANA [Concomitant]
     Indication: SPINAL COLUMN STENOSIS
  16. NARCOTICS (NOS) [Concomitant]
     Indication: BACK PAIN
     Route: 048
  17. NARCOTICS (NOS) [Concomitant]
     Indication: NECK PAIN
     Route: 048
  18. MARIJUANA [Concomitant]
     Indication: PAIN IN EXTREMITY
  19. MARIJUANA [Concomitant]
     Indication: HYPOAESTHESIA
  20. MARIJUANA [Concomitant]
     Indication: BACK PAIN
  21. NARCOTICS (NOS) [Concomitant]
     Indication: PAIN IN EXTREMITY
     Route: 048
  22. NARCOTICS (NOS) [Concomitant]
     Indication: FOOT FRACTURE
     Route: 048
  23. NARCOTICS (NOS) [Concomitant]
     Indication: SPINAL COLUMN STENOSIS
     Route: 048
  24. NARCOTICS (NOS) [Concomitant]
     Indication: OEDEMA PERIPHERAL
     Route: 048
  25. MARIJUANA [Concomitant]
     Indication: INTERVERTEBRAL DISC PROTRUSION
  26. NARCOTICS (NOS) [Concomitant]
     Indication: TOBACCO USER
     Route: 048

REACTIONS (18)
  - NECK PAIN [None]
  - ARTHRALGIA [None]
  - FATIGUE [None]
  - DYSSTASIA [None]
  - DEPRESSION [None]
  - AMNESIA [None]
  - ARTHRITIS [None]
  - MIGRAINE [None]
  - BACK PAIN [None]
  - INSOMNIA [None]
  - HEADACHE [None]
  - MULTIPLE SCLEROSIS RELAPSE [None]
  - SUICIDAL IDEATION [None]
  - OEDEMA PERIPHERAL [None]
  - VITAMIN B COMPLEX DEFICIENCY [None]
  - PAIN IN EXTREMITY [None]
  - PAIN [None]
  - MEMORY IMPAIRMENT [None]
